FAERS Safety Report 7033547-2 (Version None)
Quarter: 2010Q4

REPORT INFORMATION
  Report Type: 
  Country: None (occurrence: None)
  Receive Date: 20101007
  Receipt Date: 20100923
  Transmission Date: 20110411
  Serious: Yes (Other)
  Sender: FDA-Public Use
  Company Number: PHEH2009US04183

PATIENT
  Sex: Female

DRUGS (4)
  1. AREDIA [Suspect]
     Indication: OSTEOPOROSIS
  2. AREDIA [Suspect]
     Indication: OSTEITIS DEFORMANS
  3. FOSAMAX [Suspect]
     Indication: OSTEOPOROSIS
  4. FOSAMAX [Suspect]
     Indication: OSTEITIS DEFORMANS

REACTIONS (9)
  - ANHEDONIA [None]
  - ANXIETY [None]
  - CONDITION AGGRAVATED [None]
  - EMOTIONAL DISTRESS [None]
  - INJURY [None]
  - JAW DISORDER [None]
  - NECK PAIN [None]
  - OSTEONECROSIS OF JAW [None]
  - PAIN [None]
